FAERS Safety Report 12069683 (Version 1)
Quarter: 2016Q1

REPORT INFORMATION
  Report Type: Report from Study
  Country: ID (occurrence: ID)
  Receive Date: 20160211
  Receipt Date: 20160211
  Transmission Date: 20160526
  Serious: Yes (Death, Hospitalization, Other)
  Sender: FDA-Public Use
  Company Number: ID-ROCHE-1685850

PATIENT
  Age: 37 Year
  Sex: Female

DRUGS (1)
  1. MABTHERA [Suspect]
     Active Substance: RITUXIMAB
     Indication: NON-HODGKIN^S LYMPHOMA
     Route: 065
     Dates: start: 201507, end: 201511

REACTIONS (4)
  - Nausea [Unknown]
  - Vomiting [Unknown]
  - General physical health deterioration [Fatal]
  - Brain neoplasm [Unknown]
